FAERS Safety Report 4640565-8 (Version None)
Quarter: 2005Q2

REPORT INFORMATION
  Report Type: 
  Country: None (occurrence: None)
  Receive Date: 20050418
  Receipt Date: 20050405
  Transmission Date: 20051028
  Serious: Yes (Death, Other)
  Sender: FDA-Public Use
  Company Number: MC200500320

PATIENT
  Age: 57 Year
  Sex: Male

DRUGS (1)
  1. ANGIOMAX (BIVALIRUDIN) (CONTINUED) [Suspect]
     Dosage: 0.75
     Dates: start: 20050405, end: 20050405

REACTIONS (15)
  - BLOOD GLUCOSE INCREASED [None]
  - BLOOD POTASSIUM DECREASED [None]
  - BRADYCARDIA [None]
  - CARDIO-RESPIRATORY ARREST [None]
  - CHEST PAIN [None]
  - CONVULSION [None]
  - CORONARY ARTERY THROMBOSIS [None]
  - ELECTROCARDIOGRAM ST SEGMENT ELEVATION [None]
  - ELECTROMECHANICAL DISSOCIATION [None]
  - HYPOTENSION [None]
  - HYPOXIA [None]
  - POST PROCEDURAL COMPLICATION [None]
  - STENT OCCLUSION [None]
  - VENTRICULAR FIBRILLATION [None]
  - VENTRICULAR TACHYCARDIA [None]
